FAERS Safety Report 15117258 (Version 2)
Quarter: 2018Q3

REPORT INFORMATION
  Report Type: Report from Study
  Country: CA (occurrence: CA)
  Receive Date: 20180706
  Receipt Date: 20180723
  Transmission Date: 20181010
  Serious: Yes (Hospitalization, Other)
  Sender: FDA-Public Use
  Company Number: PHHY2018CA022109

PATIENT
  Age: 73 Year
  Sex: Female

DRUGS (3)
  1. TAFINLAR [Suspect]
     Active Substance: DABRAFENIB MESYLATE
     Dosage: 150 MG, UNK
     Route: 048
  2. MEKINIST [Suspect]
     Active Substance: TRAMETINIB DIMETHYL SULFOXIDE
     Indication: METASTATIC MALIGNANT MELANOMA
     Dosage: 2 MG, UNK
     Route: 048
     Dates: start: 20180602
  3. TAFINLAR [Suspect]
     Active Substance: DABRAFENIB MESYLATE
     Indication: METASTATIC MALIGNANT MELANOMA
     Dosage: 300 MG, UNK
     Route: 048
     Dates: start: 20180602

REACTIONS (14)
  - Wrong technique in product usage process [Unknown]
  - Pyrexia [Recovered/Resolved]
  - Hypoacusis [Unknown]
  - Eye pain [Unknown]
  - Melanoderma [Unknown]
  - Hyperhidrosis [Unknown]
  - Pain in extremity [Unknown]
  - Dizziness [Unknown]
  - Malaise [Unknown]
  - Pyrexia [Recovering/Resolving]
  - Breast pain [Unknown]
  - Contusion [Unknown]
  - Headache [Unknown]
  - Mental impairment [Unknown]

NARRATIVE: CASE EVENT DATE: 20180607
